FAERS Safety Report 4533664-2 (Version None)
Quarter: 2004Q4

REPORT INFORMATION
  Report Type: 
  Country: None (occurrence: None)
  Receive Date: 20041210
  Receipt Date: 20040928
  Transmission Date: 20050328
  Serious: No
  Sender: FDA-Public Use
  Company Number: 2004-00577

PATIENT
  Sex: Female

DRUGS (1)
  1. VELCADE [Suspect]
     Dosage: 1.30 MG/M2, 1.00 MG/M2   : INTRAVENOUS
     Route: 042

REACTIONS (2)
  - DIARRHOEA [None]
  - RASH MACULO-PAPULAR [None]
